FAERS Safety Report 8603353-3 (Version None)
Quarter: 2012Q3

REPORT INFORMATION
  Report Type: 
  Country: None (occurrence: None)
  Receive Date: 20120806
  Receipt Date: 20120705
  Transmission Date: 20120928
  Serious: Yes (Other)
  Sender: FDA-Public Use
  Company Number: COL_12101_2012

PATIENT
  Age: 72 Year
  Sex: Female

DRUGS (1)
  1. PREVIDENT 5000 SENSITIVE RX MILD MINT TOOTHPASTE (SODIUM FLUORIDE 500 [Suspect]
     Indication: DENTAL CARIES
     Dosage: (ACCORDING TO DIRECTIONS ON LABEL/ BID/ ORAL)
     Route: 048
     Dates: start: 20120627, end: 20120101

REACTIONS (8)
  - ARTHRALGIA [None]
  - BONE PAIN [None]
  - ORAL DISCOMFORT [None]
  - AUTOIMMUNE DISORDER [None]
  - APHAGIA [None]
  - GINGIVAL BLEEDING [None]
  - PARAESTHESIA [None]
  - INSOMNIA [None]
